FAERS Safety Report 6977862-7 (Version None)
Quarter: 2010Q3

REPORT INFORMATION
  Report Type: 
  Country: None (occurrence: None)
  Receive Date: 20100913
  Receipt Date: 20100902
  Transmission Date: 20110219
  Serious: Yes (Hospitalization)
  Sender: FDA-Public Use
  Company Number: US-BIOGENIDEC-2009BI031962

PATIENT
  Age: 47 Year
  Sex: Female
  Weight: 65 kg

DRUGS (5)
  1. AVONEX [Suspect]
     Indication: MULTIPLE SCLEROSIS
     Route: 030
     Dates: start: 20000101
  2. AVONEX [Suspect]
     Route: 030
     Dates: end: 20040101
  3. AVONEX [Suspect]
     Route: 030
     Dates: start: 20100201
  4. MEDICINE [NOS] [Concomitant]
  5. MOTRIN [Concomitant]

REACTIONS (12)
  - ABASIA [None]
  - APHAGIA [None]
  - BLINDNESS [None]
  - DEPRESSION [None]
  - FEAR [None]
  - MUSCLE SPASMS [None]
  - MUSCULOSKELETAL STIFFNESS [None]
  - PAIN [None]
  - SCREAMING [None]
  - SUICIDE ATTEMPT [None]
  - TREMOR [None]
  - WEIGHT DECREASED [None]
